FAERS Safety Report 9001449 (Version 6)
Quarter: 2014Q2

REPORT INFORMATION
  Report Type: Report from Study
  Country: GB (occurrence: GB)
  Receive Date: 20130107
  Receipt Date: 20140501
  Transmission Date: 20141212
  Serious: Yes (Death, Life-Threatening, Hospitalization, Other)
  Sender: FDA-Public Use
  Company Number: GB-CELGENEUS-167-21880-13010006

PATIENT
  Age: 76 Year
  Sex: Male
  Weight: 93.8 kg

DRUGS (52)
  1. REVLIMID [Suspect]
     Indication: PLASMA CELL MYELOMA RECURRENT
     Route: 048
     Dates: start: 20111222
  2. REVLIMID [Suspect]
     Dosage: DOSE LEVEL 25
     Route: 048
     Dates: start: 20111222, end: 20120129
  3. REVLIMID [Suspect]
     Dosage: DOSE LEVEL 15
     Route: 048
     Dates: start: 20120216, end: 20120307
  4. REVLIMID [Suspect]
     Dosage: DOSE LEVEL 10
     Route: 048
     Dates: start: 20120322, end: 20120502
  5. REVLIMID [Suspect]
     Dosage: DOSE LEVEL 15
     Route: 048
     Dates: start: 20120510, end: 20121114
  6. REVLIMID [Suspect]
     Route: 048
     Dates: start: 20121122, end: 20121122
  7. REVLIMID [Suspect]
     Dosage: 15 MILLIGRAM
     Route: 048
     Dates: start: 20121123, end: 20121212
  8. CARFILZOMIB [Suspect]
     Indication: PLASMA CELL MYELOMA RECURRENT
     Dosage: 41 MILLIGRAM
     Route: 041
     Dates: start: 20111222, end: 20111223
  9. CARFILZOMIB [Suspect]
     Dosage: 55 MILLIGRAM
     Route: 065
     Dates: start: 20111229, end: 20120106
  10. CARFILZOMIB [Suspect]
     Dosage: 41 MILLIGRAM
     Route: 065
     Dates: start: 20120322, end: 20120330
  11. CARFILZOMIB [Suspect]
     Dosage: 41 MILLIGRAM
     Route: 065
     Dates: start: 20121025, end: 20121108
  12. CARFILZOMIB [Suspect]
     Dosage: 27 MILLIGRAM/SQ. METER
     Route: 041
     Dates: start: 20111222, end: 20121221
  13. CARFILZOMIB [Suspect]
     Dosage: 56 MILLIGRAM
     Route: 065
     Dates: start: 20121122, end: 20121221
  14. DEXAMETHASONE [Suspect]
     Indication: PLASMA CELL MYELOMA RECURRENT
     Dosage: DOSE LEVEL 40
     Route: 048
     Dates: start: 20111222, end: 20120112
  15. DEXAMETHASONE [Suspect]
     Route: 065
     Dates: start: 20120119, end: 20120119
  16. DEXAMETHASONE [Suspect]
     Route: 065
     Dates: start: 20120216, end: 20120308
  17. DEXAMETHASONE [Suspect]
     Route: 065
     Dates: start: 20121025, end: 20121115
  18. DEXAMETHASONE [Suspect]
     Route: 065
     Dates: start: 20121122, end: 20121122
  19. DEXAMETHASONE [Suspect]
     Route: 065
     Dates: start: 20121129, end: 20121213
  20. BISOPROLOL [Concomitant]
     Indication: MYOCARDIAL ISCHAEMIA
     Dosage: 2.5 MILLIGRAM
     Route: 048
     Dates: end: 20121223
  21. BISOPROLOL [Concomitant]
     Indication: HYPERTENSION
     Dosage: 5 MILLIGRAM
     Route: 048
     Dates: start: 2006
  22. RAMIPRIL [Concomitant]
     Indication: MYOCARDIAL ISCHAEMIA
     Dosage: 5 MILLIGRAM
     Route: 048
     Dates: end: 20121223
  23. RAMIPRIL [Concomitant]
     Indication: HYPERTENSION
     Dosage: 5 MILLIGRAM
     Route: 048
     Dates: start: 2006
  24. METFORMIN [Concomitant]
     Indication: DIABETES MELLITUS
     Dosage: 2 GRAM
     Route: 048
     Dates: end: 20121223
  25. METFORMIN [Concomitant]
     Dosage: 1000 MILLIGRAM
     Route: 048
     Dates: start: 1987
  26. ASPIRINE [Concomitant]
     Indication: MYOCARDIAL ISCHAEMIA
     Dosage: 75 MILLIGRAM
     Route: 048
     Dates: end: 20121223
  27. ASPIRINE [Concomitant]
     Indication: ANTICOAGULANT THERAPY
     Dosage: 75 MILLIGRAM
     Route: 048
     Dates: start: 20111220
  28. OMEPRAZOLE [Concomitant]
     Indication: PROPHYLAXIS
     Dosage: 20 MILLIGRAM
     Route: 048
     Dates: start: 20121222, end: 20121223
  29. OMEPRAZOLE [Concomitant]
     Dosage: 20 MILLIGRAM
     Route: 048
     Dates: start: 20111220
  30. FLUCONAZOLE [Concomitant]
     Indication: ANTIFUNGAL PROPHYLAXIS
     Dosage: 50 MILLIGRAM
     Route: 048
     Dates: start: 20121222, end: 20121223
  31. FLUCONAZOLE [Concomitant]
     Dosage: 50 MILLIGRAM
     Route: 048
     Dates: start: 20111222
  32. FUROSEMIDE [Concomitant]
     Indication: POLYURIA
     Dosage: 50 MILLIGRAM
     Route: 048
     Dates: end: 20121223
  33. FUROSEMIDE [Concomitant]
     Indication: CARDIAC FAILURE CONGESTIVE
     Dosage: 40 MILLIGRAM
     Route: 048
     Dates: start: 20120316
  34. ATORVASTATIN [Concomitant]
     Indication: BLOOD CHOLESTEROL INCREASED
     Dosage: 40 MILLIGRAM
     Route: 048
     Dates: end: 20121223
  35. ATORVASTATIN [Concomitant]
     Dosage: 50 MILLIGRAM
     Route: 048
     Dates: start: 20061229
  36. SALBUTAMOL [Concomitant]
     Indication: RESPIRATORY DISORDER
     Dosage: 2 PUFF
     Route: 055
     Dates: end: 20121223
  37. SALBUTAMOL [Concomitant]
     Indication: CARDIAC FAILURE CONGESTIVE
     Dosage: 400 MICROGRAM
     Route: 055
     Dates: start: 20120201
  38. NOVOMIX [Concomitant]
     Indication: DIABETES MELLITUS
     Route: 058
     Dates: end: 20121223
  39. NOVOMIX [Concomitant]
     Dosage: UNITS
     Route: 058
     Dates: start: 1987
  40. NOVOMIX [Concomitant]
     Dosage: UNITS
     Route: 058
     Dates: start: 1987
  41. NOVOMIX [Concomitant]
     Dosage: UNITS
     Route: 058
     Dates: start: 1987
  42. ACTRAPID [Concomitant]
     Indication: DIABETES MELLITUS
     Route: 041
     Dates: start: 20121223, end: 20121230
  43. CO-TRIMOXAZOLE [Concomitant]
     Indication: INFECTION PROPHYLAXIS
     Dosage: 960 MILLIGRAM
     Route: 048
     Dates: start: 20121222, end: 20121223
  44. ACICLOVIR [Concomitant]
     Indication: INFECTION PROPHYLAXIS
     Dosage: 600 MILLIGRAM
     Route: 048
     Dates: start: 20121222, end: 20121230
  45. ACICLOVIR [Concomitant]
     Indication: ANTIVIRAL PROPHYLAXIS
     Dosage: 600 MILLIGRAM
     Route: 048
     Dates: start: 20111220
  46. ALLOPURINOL [Concomitant]
     Indication: BLOOD UREA INCREASED
     Dosage: 300 MILLIGRAM
     Route: 048
     Dates: start: 20121022
  47. AMOXICILLIN [Concomitant]
     Indication: LOWER RESPIRATORY TRACT INFECTION
     Dosage: 1500 MILLIGRAM
     Route: 048
     Dates: start: 20121214
  48. CO-CODAMOL [Concomitant]
     Indication: NECK PAIN
     Dosage: CODEINE 8 PARACETA MG
     Route: 048
     Dates: start: 20120705
  49. ORAMORPH [Concomitant]
     Indication: NECK PAIN
     Dosage: 10 MILLIGRAM
     Route: 048
     Dates: start: 20120705
  50. PARACETAMOL [Concomitant]
     Indication: NECK PAIN
     Route: 048
     Dates: start: 20120202
  51. SEPTRIN [Concomitant]
     Indication: ANTIBIOTIC PROPHYLAXIS
     Route: 048
     Dates: start: 20111220, end: 20121221
  52. SEPTRIN [Concomitant]
     Indication: CARDIAC FAILURE CONGESTIVE
     Route: 048

REACTIONS (3)
  - Neutropenic sepsis [Recovered/Resolved]
  - Myocardial infarction [Fatal]
  - Renal failure acute [Not Recovered/Not Resolved]
